FAERS Safety Report 15426907 (Version 2)
Quarter: 2018Q4

REPORT INFORMATION
  Report Type: Spontaneous
  Country: HU (occurrence: HU)
  Receive Date: 20180925
  Receipt Date: 20181102
  Transmission Date: 20190204
  Serious: Yes (Other)
  Sender: FDA-Public Use
  Company Number: HU-MYLANLABS-2018M1067443

PATIENT
  Age: 38 Year
  Sex: Female

DRUGS (6)
  1. STIGMOSAN /00045903/ [Suspect]
     Active Substance: NEOSTIGMINE METHYLSULFATE
     Indication: GENERAL ANAESTHESIA
     Dosage: UNK
     Route: 065
  2. DEXAMETHASONE SODIUM PHOSPHATE. [Suspect]
     Active Substance: DEXAMETHASONE SODIUM PHOSPHATE
     Indication: NEONATAL RESPIRATORY DISTRESS SYNDROME PROPHYLAXIS
     Dosage: 1 DF, BID, 4X6 MG, Q12H
     Route: 065
  3. ATROPINE. [Suspect]
     Active Substance: ATROPINE
     Indication: GENERAL ANAESTHESIA
     Dosage: UNK
     Route: 065
  4. ESMERON [Suspect]
     Active Substance: ROCURONIUM BROMIDE
     Indication: GENERAL ANAESTHESIA
     Dosage: UNK
     Route: 065
  5. PROPOFOL. [Suspect]
     Active Substance: PROPOFOL
     Indication: GENERAL ANAESTHESIA
     Dosage: UNK
     Route: 065
  6. FENTANYL. [Suspect]
     Active Substance: FENTANYL
     Indication: GENERAL ANAESTHESIA
     Dosage: UNK
     Route: 065

REACTIONS (4)
  - Maternal exposure during pregnancy [Recovered/Resolved]
  - Premature delivery [Recovered/Resolved]
  - Haemorrhage [Recovered/Resolved]
  - Haemodynamic instability [Recovered/Resolved]
